FAERS Safety Report 10514827 (Version 1)
Quarter: 2014Q4

REPORT INFORMATION
  Report Type: Spontaneous
  Country: US (occurrence: US)
  Receive Date: 20141013
  Receipt Date: 20141013
  Transmission Date: 20150528
  Serious: Yes (Other)
  Sender: FDA-Public Use
  Company Number: US-GILEAD-2014-0117968

PATIENT
  Age: 63 Year
  Sex: Female

DRUGS (5)
  1. SANDOSTATIN [Concomitant]
     Active Substance: OCTREOTIDE ACETATE
  2. REVLIMID [Concomitant]
     Active Substance: LENALIDOMIDE
  3. LETAIRIS [Suspect]
     Active Substance: AMBRISENTAN
     Indication: PULMONARY HYPERTENSION
     Dosage: 5 MG, QD
     Route: 065
     Dates: start: 20120106
  4. ADCIRCA [Concomitant]
     Active Substance: TADALAFIL
     Indication: PRODUCT USED FOR UNKNOWN INDICATION
  5. CARFILZOMIB [Concomitant]
     Active Substance: CARFILZOMIB

REACTIONS (7)
  - Malaise [Unknown]
  - Productive cough [Unknown]
  - Seizure [Unknown]
  - Ear discomfort [Unknown]
  - Multi-organ failure [Unknown]
  - Sinus congestion [Unknown]
  - Asthenia [Unknown]

NARRATIVE: CASE EVENT DATE: 201409
